FAERS Safety Report 4688573-5 (Version None)
Quarter: 2005Q2

REPORT INFORMATION
  Report Type: 
  Country: None (occurrence: None)
  Receive Date: 20050613
  Receipt Date: 20050603
  Transmission Date: 20051028
  Serious: Yes (Hospitalization)
  Sender: FDA-Public Use
  Company Number: 200511660JP

PATIENT
  Age: 73 Year
  Sex: Male

DRUGS (2)
  1. DAONIL [Suspect]
     Indication: DIABETES MELLITUS
     Route: 048
  2. MELBIN [Concomitant]
     Indication: DIABETES MELLITUS

REACTIONS (4)
  - COUGH [None]
  - DYSPNOEA [None]
  - PNEUMONIA [None]
  - PYREXIA [None]
